FAERS Safety Report 5386885-3 (Version None)
Quarter: 2007Q3

REPORT INFORMATION
  Report Type: 
  Country: None (occurrence: None)
  Receive Date: 20070713
  Receipt Date: 20070702
  Transmission Date: 20080115
  Serious: Yes (Hospitalization)
  Sender: FDA-Public Use
  Company Number: JP-PFIZER INC-2007044172

PATIENT
  Sex: Male
  Weight: 67 kg

DRUGS (4)
  1. ZITHROMAC [Suspect]
     Indication: PNEUMONIA
     Route: 048
     Dates: start: 20070521, end: 20070523
  2. AVELOX [Suspect]
     Indication: BACTERIAL INFECTION
     Route: 048
     Dates: start: 20070518, end: 20070520
  3. CIPROFLOXACIN [Suspect]
     Indication: BACTERIAL INFECTION
     Route: 048
     Dates: start: 20070518, end: 20070520
  4. MINOCYCLINE HCL [Suspect]
     Indication: BACTERIAL INFECTION
     Route: 042

REACTIONS (1)
  - BRADYARRHYTHMIA [None]
